FAERS Safety Report 7668261-3 (Version None)
Quarter: 2011Q3

REPORT INFORMATION
  Report Type: 
  Country: None (occurrence: None)
  Receive Date: 20110808
  Receipt Date: 20110725
  Transmission Date: 20111222
  Serious: Yes (Hospitalization, Other)
  Sender: FDA-Public Use
  Company Number: FR-UCBSA-037697

PATIENT
  Sex: Female

DRUGS (3)
  1. KEPPRA [Suspect]
     Indication: MYOCLONUS
     Dosage: 750 MG X 2
     Route: 048
     Dates: start: 20101029, end: 20101031
  2. PRIMPERAN TAB [Concomitant]
     Dosage: SINGLE INTAKE
     Dates: start: 20101023, end: 20101023
  3. OXAZEPAM [Concomitant]
     Dosage: SINGLE INTAKE
     Dates: start: 20101027, end: 20101027

REACTIONS (1)
  - HAEMOLYTIC ANAEMIA [None]
